FAERS Safety Report 23161839 (Version 1)
Quarter: 2023Q4

REPORT INFORMATION
  Report Type: Report from Study
  Country: AU (occurrence: AU)
  Receive Date: 20231108
  Receipt Date: 20231108
  Transmission Date: 20240109
  Serious: Yes (Hospitalization)
  Sender: FDA-Public Use
  Company Number: AU-ABBVIE-5483985

PATIENT
  Sex: Female

DRUGS (2)
  1. CARBIDOPA\LEVODOPA [Suspect]
     Active Substance: CARBIDOPA\LEVODOPA
     Indication: Parkinson^s disease
     Dosage: CONTINUOUS RATE 2.7MLS PER HOUR?DOSE INCREASED?DUODOPA 100ML GEL CASSETTE
     Route: 050
  2. CARBIDOPA\LEVODOPA [Suspect]
     Active Substance: CARBIDOPA\LEVODOPA
     Dosage: CONTINUOUS RATE 2.6MLS PER HOUR?DUODOPA 100ML GEL CASSETTE
     Route: 050
     Dates: start: 20191129

REACTIONS (2)
  - Spinal cord disorder [Unknown]
  - Pain [Unknown]
